FAERS Safety Report 24632308 (Version 1)
Quarter: 2024Q4

REPORT INFORMATION
  Report Type: Spontaneous
  Country: US (occurrence: US)
  Receive Date: 20241118
  Receipt Date: 20241118
  Transmission Date: 20250115
  Serious: No
  Sender: CHIESI
  Company Number: US-CHIESI-2024CHF02527

PATIENT
  Age: 1 Year
  Sex: Female

DRUGS (1)
  1. REVCOVI [Suspect]
     Active Substance: ELAPEGADEMASE-LVLR
     Indication: Combined immunodeficiency
     Dosage: 2.2MG, ONCE A WEEK
     Route: 030
     Dates: start: 20221015

REACTIONS (1)
  - Hand-foot-and-mouth disease [Recovered/Resolved]

NARRATIVE: CASE EVENT DATE: 20240415
